FAERS Safety Report 18908045 (Version 1)
Quarter: 2021Q1

REPORT INFORMATION
  Report Type: Spontaneous
  Country: US (occurrence: US)
  Receive Date: 20210218
  Receipt Date: 20210218
  Transmission Date: 20210420
  Serious: Yes (Other)
  Sender: FDA-Public Use
  Company Number: US-NOVEN PHARMACEUTICALS, INC.-2020US009311

PATIENT
  Sex: Male
  Weight: 27.21 kg

DRUGS (5)
  1. DAYTRANA [Suspect]
     Active Substance: METHYLPHENIDATE
     Dosage: 10 MG/ 9HOUR, UNK
     Route: 062
     Dates: start: 202008, end: 202009
  2. DAYTRANA [Suspect]
     Active Substance: METHYLPHENIDATE
     Indication: ATTENTION DEFICIT HYPERACTIVITY DISORDER
     Dosage: 20 MG/ 9HOUR, UNK
     Route: 062
     Dates: start: 202009
  3. DAYTRANA [Suspect]
     Active Substance: METHYLPHENIDATE
     Dosage: 10 MG/9HOUR, UNK
     Route: 062
     Dates: start: 2020, end: 202005
  4. DAYTRANA [Suspect]
     Active Substance: METHYLPHENIDATE
     Dosage: 20 MG/ 9HOUR, UNK
     Route: 062
     Dates: start: 202005
  5. ZYRTEC [Concomitant]
     Active Substance: CETIRIZINE HYDROCHLORIDE
     Indication: SEASONAL ALLERGY
     Dosage: UNK
     Route: 065

REACTIONS (9)
  - Therapeutic product effect delayed [Recovered/Resolved]
  - Impaired reasoning [Not Recovered/Not Resolved]
  - Decreased appetite [Not Recovered/Not Resolved]
  - Intentional removal of drug delivery system by patient [Unknown]
  - Device difficult to use [Not Recovered/Not Resolved]
  - Accidental exposure to product [Recovered/Resolved]
  - Product administered at inappropriate site [Not Recovered/Not Resolved]
  - Therapeutic product effect incomplete [Recovered/Resolved]
  - Anger [Not Recovered/Not Resolved]

NARRATIVE: CASE EVENT DATE: 2020
